FAERS Safety Report 5006035-2 (Version None)
Quarter: 2006Q1

REPORT INFORMATION
  Report Type: 
  Country: None (occurrence: None)
  Receive Date: 20060320
  Receipt Date: 20030102
  Transmission Date: 20060701
  Serious: Yes (Disabling, Other)
  Sender: FDA-Public Use
  Company Number: 2003-01-0087

PATIENT
  Age: 63 Year
  Sex: Female
  Weight: 43.5453 kg

DRUGS (2)
  1. PEG-INTRON [Suspect]
     Indication: HEPATITIS C
     Dosage: 80 MCG QWK* SUBCUTANEOUS
     Route: 058
     Dates: start: 20020201, end: 20021101
  2. REBETOL [Suspect]
     Indication: HEPATITIS C
     Dosage: 800 MCG QD ORAL
     Route: 048
     Dates: start: 20020201, end: 20021101

REACTIONS (7)
  - ALOPECIA [None]
  - INFLUENZA LIKE ILLNESS [None]
  - MALAISE [None]
  - PALPITATIONS [None]
  - THYROID DISORDER [None]
  - WEIGHT DECREASED [None]
  - WHITE BLOOD CELL COUNT DECREASED [None]
